FAERS Safety Report 8290719-7 (Version None)
Quarter: 2012Q2

REPORT INFORMATION
  Report Type: 
  Country: None (occurrence: None)
  Receive Date: 20120417
  Receipt Date: 20110525
  Transmission Date: 20120825
  Serious: Yes (Other)
  Sender: FDA-Public Use
  Company Number: US-ASTRAZENECA-2011SE32286

PATIENT
  Sex: Female

DRUGS (3)
  1. NEXIUM [Suspect]
     Indication: DYSPEPSIA
     Dosage: PRN
     Route: 048
  2. PREDNISOLONE [Suspect]
     Route: 065
  3. NEXIUM [Suspect]
     Indication: ABDOMINAL DISTENSION
     Dosage: PRN
     Route: 048

REACTIONS (3)
  - OFF LABEL USE [None]
  - BRONCHITIS [None]
  - WRIST FRACTURE [None]
